FAERS Safety Report 18276609 (Version 4)
Quarter: 2023Q4

REPORT INFORMATION
  Report Type: Spontaneous
  Country: JP (occurrence: JP)
  Receive Date: 20200917
  Receipt Date: 20231208
  Transmission Date: 20240110
  Serious: Yes (Hospitalization, Other)
  Sender: FDA-Public Use
  Company Number: JP-MSD-2009JPN000741J

PATIENT
  Age: 80 Year
  Sex: Male

DRUGS (1)
  1. KEYTRUDA [Suspect]
     Active Substance: PEMBROLIZUMAB
     Indication: Ureteric cancer
     Dosage: UNK
     Route: 041
     Dates: start: 20190821

REACTIONS (2)
  - Rheumatoid arthritis [Recovering/Resolving]
  - Myocarditis [Unknown]

NARRATIVE: CASE EVENT DATE: 20190905
